FAERS Safety Report 11193333 (Version 2)
Quarter: 2015Q3

REPORT INFORMATION
  Report Type: Spontaneous
  Country: US (occurrence: US)
  Receive Date: 20150616
  Receipt Date: 20150706
  Transmission Date: 20151125
  Serious: No
  Sender: FDA-Public Use
  Company Number: US-PFIZER INC-2015198544

PATIENT
  Age: 86 Year
  Sex: Female

DRUGS (2)
  1. ZOMETA [Concomitant]
     Active Substance: ZOLEDRONIC ACID
     Dosage: UNK (EVERY 84 DAYS)
     Route: 042
  2. SUTENT [Suspect]
     Active Substance: SUNITINIB MALATE
     Dosage: 50 MG, CYCLIC (50 MG ONE EVERY OTHER DAY FOR 28 DAYS THEN 14 DAY OFF THEN START OVER)
     Dates: start: 2009

REACTIONS (3)
  - Hypoacusis [Not Recovered/Not Resolved]
  - Back disorder [Not Recovered/Not Resolved]
  - Oedema peripheral [Not Recovered/Not Resolved]
